FAERS Safety Report 8474381-6 (Version None)
Quarter: 2012Q2

REPORT INFORMATION
  Report Type: 
  Country: None (occurrence: None)
  Receive Date: 20120628
  Receipt Date: 20120328
  Transmission Date: 20120825
  Serious: Yes (Other)
  Sender: FDA-Public Use
  Company Number: US-MYLANLABS-2012S1002604

PATIENT
  Age: 25 Year
  Sex: Male
  Weight: 79.83 kg

DRUGS (12)
  1. BENADRYL [Concomitant]
     Dates: start: 20020101
  2. INVEGA SUSTENNA [Concomitant]
     Dates: start: 20020101
  3. BENZTROPINE MESYLATE [Concomitant]
     Dates: start: 20020101
  4. ATIVAN [Concomitant]
     Dates: start: 20020101
  5. FLEXERIL [Concomitant]
     Dates: start: 20020101
  6. QVAR 40 [Concomitant]
     Dates: start: 20020101
  7. DEPAKOTE ER [Concomitant]
     Dates: start: 20020101
  8. ACETAMINOPHEN [Concomitant]
     Dates: start: 20020101
  9. CLOZAPINE [Suspect]
     Route: 048
     Dates: start: 20120130, end: 20120202
  10. CLOZAPINE [Suspect]
     Indication: SCHIZOPHRENIA, PARANOID TYPE
     Dates: start: 20120125, end: 20120128
  11. IBU [Concomitant]
     Dates: start: 20020101
  12. ALBUTEROL [Concomitant]
     Dosage: HFA
     Dates: start: 20020101

REACTIONS (1)
  - GRANULOCYTOPENIA [None]
